FAERS Safety Report 8924846 (Version 1)
Quarter: 2012Q4

REPORT INFORMATION
  Report Type: 
  Country: JP (occurrence: JP)
  Receive Date: 20121126
  Receipt Date: 20121126
  Transmission Date: 20130627
  Serious: Yes (Hospitalization)
  Sender: FDA-Public Use
  Company Number: JP-ROCHE-263536

PATIENT
  Age: 16 Year
  Sex: Female

DRUGS (14)
  1. ROCEPHIN [Suspect]
     Indication: TONSILLITIS
     Route: 042
     Dates: start: 19990415, end: 19990419
  2. ROCEPHIN [Suspect]
     Indication: TONSILLITIS
     Route: 041
     Dates: start: 19990414, end: 19990414
  3. VOLTAREN [Suspect]
     Indication: TONSILLITIS
     Route: 048
     Dates: start: 19990413, end: 19990415
  4. FLOMOX [Suspect]
     Indication: TONSILLITIS
     Route: 048
     Dates: start: 19990413, end: 19990415
  5. BANAN [Suspect]
     Indication: TONSILLITIS
     Route: 048
     Dates: start: 19990416, end: 19990418
  6. PHENIRAMINE [Concomitant]
     Indication: TONSILLITIS
     Route: 048
     Dates: start: 19990413, end: 19990415
  7. LAC B [Concomitant]
     Indication: TONSILLITIS
     Route: 048
     Dates: start: 19990413, end: 19990415
  8. MEDICON [Concomitant]
     Indication: TONSILLITIS
     Route: 048
     Dates: start: 19990413, end: 19990415
  9. METHYLEPHEDRINE HYDROCHLORIDE [Concomitant]
     Indication: TONSILLITIS
     Route: 048
     Dates: start: 19990413, end: 19990415
  10. MUCODYNE [Concomitant]
     Indication: TONSILLITIS
     Route: 048
     Dates: start: 19990413, end: 19990415
  11. ISODINE [Concomitant]
     Indication: TONSILLITIS
     Route: 048
     Dates: start: 19990413, end: 19990415
  12. SELBEX [Concomitant]
     Indication: TONSILLITIS
     Route: 048
     Dates: start: 19990416, end: 19990418
  13. TRANSAMIN [Concomitant]
     Indication: TONSILLITIS
     Route: 048
     Dates: start: 19990416, end: 19990418
  14. MUCOSTA [Concomitant]
     Route: 048
     Dates: start: 19990419, end: 19990421

REACTIONS (1)
  - Liver injury [Recovered/Resolved]
